FAERS Safety Report 7398208-9 (Version None)
Quarter: 2011Q2

REPORT INFORMATION
  Report Type: 
  Country: None (occurrence: None)
  Receive Date: 20110406
  Receipt Date: 20110311
  Transmission Date: 20111010
  Serious: No
  Sender: FDA-Public Use
  Company Number: US-B.I. PHARMACEUTICALS,INC./RIDGEFIELD-2011-BP-07825BP

PATIENT
  Age: 77 Year
  Sex: Male

DRUGS (7)
  1. METOPROLOL [Concomitant]
  2. MAG OX [Concomitant]
  3. GLUCOSAN [Concomitant]
  4. PRADAXA [Suspect]
     Indication: ATRIAL FIBRILLATION
     Dosage: 300 MG
     Route: 048
     Dates: start: 20101126
  5. FISH OIL [Concomitant]
  6. LIPITOR [Concomitant]
  7. LISINOPRIL [Concomitant]

REACTIONS (5)
  - OROPHARYNGEAL PAIN [None]
  - NASOPHARYNGITIS [None]
  - ASTHENIA [None]
  - DIZZINESS [None]
  - COUGH [None]
